FAERS Safety Report 25916241 (Version 1)
Quarter: 2025Q4

REPORT INFORMATION
  Report Type: Spontaneous
  Country: US (occurrence: US)
  Receive Date: 20251014
  Receipt Date: 20251014
  Transmission Date: 20260118
  Serious: Yes (Other)
  Sender: ALEXION PHARMACEUTICALS
  Company Number: US-AstraZeneca-CH-00967025A

PATIENT
  Age: 86 Year
  Sex: Female

DRUGS (1)
  1. SYMBICORT [Suspect]
     Active Substance: BUDESONIDE\FORMOTEROL FUMARATE DIHYDRATE
     Route: 065

REACTIONS (9)
  - Atrial fibrillation [Unknown]
  - Chronic obstructive pulmonary disease [Unknown]
  - Mood altered [Unknown]
  - Heart rate abnormal [Unknown]
  - Asthenia [Unknown]
  - Insomnia [Unknown]
  - Drug ineffective [Unknown]
  - Drug effect less than expected [Unknown]
  - Drug intolerance [Unknown]
